FAERS Safety Report 4903382-7 (Version None)
Quarter: 2006Q1

REPORT INFORMATION
  Report Type: 
  Country: None (occurrence: None)
  Receive Date: 20060203
  Receipt Date: 20060117
  Transmission Date: 20060701
  Serious: Yes (Other)
  Sender: FDA-Public Use
  Company Number: 2006BI000980

PATIENT
  Age: 32 Year

DRUGS (1)
  1. AMEVIVE            (ALEFACEPT) [Suspect]
     Indication: GRAFT VERSUS HOST DISEASE
     Dosage: 30 MG; BIW; IM
     Route: 030

REACTIONS (4)
  - CYSTITIS HAEMORRHAGIC [None]
  - PHARYNGEAL CANDIDIASIS [None]
  - PNEUMONIA BACTERIAL [None]
  - STAPHYLOCOCCAL BACTERAEMIA [None]
